FAERS Safety Report 9678200 (Version 1)
Quarter: 2013Q4

REPORT INFORMATION
  Report Type: Report from Study
  Country: DE (occurrence: DE)
  Receive Date: 20131108
  Receipt Date: 20131108
  Transmission Date: 20140711
  Serious: Yes (Hospitalization, Other)
  Sender: FDA-Public Use
  Company Number: DE-ABBVIE-13P-062-1165752-00

PATIENT
  Sex: Female

DRUGS (2)
  1. HUMIRA [Suspect]
     Indication: ANKYLOSING SPONDYLITIS
     Route: 058
     Dates: start: 20111219, end: 201309
  2. HUMIRA [Suspect]
     Dates: start: 201310

REACTIONS (3)
  - Tendon rupture [Recovering/Resolving]
  - Thrombosis [Recovering/Resolving]
  - Accident [Unknown]
